FAERS Safety Report 12567757 (Version 1)
Quarter: 2016Q3

REPORT INFORMATION
  Report Type: Spontaneous
  Country: US (occurrence: US)
  Receive Date: 20160718
  Receipt Date: 20160718
  Transmission Date: 20161109
  Serious: No
  Sender: FDA-Public Use
  Company Number: US-ASTELLAS-2016US006385

PATIENT

DRUGS (2)
  1. MYRBETRIQ [Suspect]
     Active Substance: MIRABEGRON
     Indication: SPINAL CORD DISORDER
     Dosage: UNK UNK, UNKNOWN FREQ.
     Route: 065
  2. BOTOX [Concomitant]
     Active Substance: ONABOTULINUMTOXINA
     Indication: SPINAL CORD DISORDER
     Dosage: UNK UNK, UNKNOWN FREQ.
     Route: 065

REACTIONS (1)
  - Off label use [Unknown]
